FAERS Safety Report 4836988-4 (Version None)
Quarter: 2005Q4

REPORT INFORMATION
  Report Type: 
  Country: None (occurrence: None)
  Receive Date: 20051121
  Receipt Date: 20051110
  Transmission Date: 20060501
  Serious: Yes (Life-Threatening, Hospitalization)
  Sender: FDA-Public Use
  Company Number: SEWYE133011NOV05

PATIENT
  Age: 83 Year
  Sex: Female

DRUGS (15)
  1. TAZOCIN (PIPERACILLIN/TAZOBACTAM, INJECTION) [Suspect]
     Indication: ERYSIPELAS
     Dosage: 4 G 3X PER 1 DAY
     Route: 042
     Dates: start: 20040917, end: 20040920
  2. GEEPENIL (BENZYLPENICILLIN SODIUM) [Suspect]
     Indication: ERYSIPELAS
     Dosage: 2 MILJ IU ONE TIME PER DAY
     Route: 042
     Dates: start: 20040920, end: 20040923
  3. REMERON [Suspect]
     Indication: DEPRESSION
     Dosage: 15 MG PER DAY
     Route: 048
     Dates: start: 20041005, end: 20041013
  4. ZINACEF [Concomitant]
     Indication: PYELONEPHRITIS ACUTE
     Dosage: 1.5 G 3X PER 1 DAY
     Route: 042
     Dates: start: 20040916, end: 20040917
  5. ZINACEF [Concomitant]
     Indication: RENAL CYST INFECTION
     Dosage: 1.5 G 3X PER 1 DAY
     Route: 042
     Dates: start: 20040916, end: 20040917
  6. ZINACEF [Concomitant]
     Indication: PYELONEPHRITIS ACUTE
     Dosage: 1.5 G 3X PER 1 DAY
     Route: 042
     Dates: start: 20040923, end: 20041011
  7. ZINACEF [Concomitant]
     Indication: RENAL CYST INFECTION
     Dosage: 1.5 G 3X PER 1 DAY
     Route: 042
     Dates: start: 20040923, end: 20041011
  8. ZYRTEC [Concomitant]
  9. MEDROL [Concomitant]
  10. MERONEM (MEROPENEM) [Concomitant]
  11. NEUPOGEN [Concomitant]
  12. TRIKOZOL (METRONIDAZOLE) [Concomitant]
  13. CIPROFLOXACIN [Concomitant]
  14. LEVOFLOXACIN [Concomitant]
  15. CLINDAMYCIN PHOSPHATE [Concomitant]

REACTIONS (12)
  - AGRANULOCYTOSIS [None]
  - ARTHRITIS INFECTIVE [None]
  - BETA HAEMOLYTIC STREPTOCOCCAL INFECTION [None]
  - BLOOD PRESSURE DIASTOLIC DECREASED [None]
  - BODY TEMPERATURE INCREASED [None]
  - C-REACTIVE PROTEIN INCREASED [None]
  - DIARRHOEA [None]
  - ERYSIPELAS [None]
  - HAEMOGLOBIN DECREASED [None]
  - PYELONEPHRITIS [None]
  - RENAL CYST [None]
  - WHITE BLOOD CELL COUNT INCREASED [None]
